FAERS Safety Report 11870415 (Version 1)
Quarter: 2015Q4

REPORT INFORMATION
  Report Type: Spontaneous
  Country: US (occurrence: US)
  Receive Date: 20151228
  Receipt Date: 20151228
  Transmission Date: 20160305
  Serious: Yes (Death)
  Sender: FDA-Public Use
  Company Number: US-SA-2014SA167136

PATIENT
  Age: 73 Year
  Sex: Female
  Weight: 75 kg

DRUGS (25)
  1. PLAVIX [Suspect]
     Active Substance: CLOPIDOGREL BISULFATE
     Indication: ACUTE CORONARY SYNDROME
     Route: 065
     Dates: start: 20100429, end: 201107
  2. PLAVIX [Suspect]
     Active Substance: CLOPIDOGREL BISULFATE
     Indication: STENT PLACEMENT
     Route: 065
     Dates: start: 201109, end: 20120130
  3. ASPIRIN. [Suspect]
     Active Substance: ASPIRIN
     Route: 065
  4. SALBUTAMOL SULFATE/IPRATROPIUM BROMIDE [Concomitant]
     Dates: end: 20120130
  5. VERSED [Concomitant]
     Active Substance: MIDAZOLAM HYDROCHLORIDE
     Indication: ENDOTRACHEAL INTUBATION
     Dosage: SIGHT: RIGHT ANTECUBITAL
     Route: 042
     Dates: start: 20120130, end: 20120130
  6. COUMADIN [Concomitant]
     Active Substance: WARFARIN SODIUM
     Dates: start: 2011, end: 20120130
  7. PROGRAF [Concomitant]
     Active Substance: TACROLIMUS\TACROLIMUS ANHYDROUS
     Dates: end: 20120130
  8. METOPROLOL [Concomitant]
     Active Substance: METOPROLOL
     Dates: end: 20120130
  9. AMIODARONE [Concomitant]
     Active Substance: AMIODARONE
     Dates: end: 20120130
  10. PLAVIX [Suspect]
     Active Substance: CLOPIDOGREL BISULFATE
     Indication: ACUTE CORONARY SYNDROME
     Route: 065
     Dates: start: 201109, end: 20120130
  11. REQUIP [Concomitant]
     Active Substance: ROPINIROLE HYDROCHLORIDE
     Dates: end: 20120130
  12. PEPCID [Concomitant]
     Active Substance: FAMOTIDINE
     Dates: end: 20120130
  13. AMLODIPINE [Concomitant]
     Active Substance: AMLODIPINE BESYLATE
     Dates: end: 20120130
  14. PREDNISONE. [Concomitant]
     Active Substance: PREDNISONE
     Dates: end: 20120130
  15. AZATHIOPRINE. [Concomitant]
     Active Substance: AZATHIOPRINE
     Dates: end: 20120130
  16. VERSED [Concomitant]
     Active Substance: MIDAZOLAM HYDROCHLORIDE
     Indication: ENDOTRACHEAL INTUBATION
     Dosage: SIGHT: RIGHT ANTECUBITAL
     Route: 042
     Dates: start: 20120130, end: 20120130
  17. DOXAZOSIN [Concomitant]
     Active Substance: DOXAZOSIN\DOXAZOSIN MESYLATE
     Dates: end: 20120130
  18. REMERON [Concomitant]
     Active Substance: MIRTAZAPINE
     Route: 048
     Dates: end: 20120130
  19. VERSED [Concomitant]
     Active Substance: MIDAZOLAM HYDROCHLORIDE
     Indication: ENDOTRACHEAL INTUBATION
     Dosage: SIGHT: RIGHT ANTECUBITAL
     Route: 042
     Dates: start: 20120130, end: 20120130
  20. PLAVIX [Suspect]
     Active Substance: CLOPIDOGREL BISULFATE
     Indication: STENT PLACEMENT
     Route: 065
     Dates: start: 20100429, end: 201107
  21. WARFARIN [Concomitant]
     Active Substance: WARFARIN
     Dates: end: 20120130
  22. VECURONIUM [Concomitant]
     Active Substance: VECURONIUM BROMIDE
     Dosage: SIGHT: RIGHT ANTECUBITAL
     Route: 042
     Dates: start: 20120130, end: 20120130
  23. NORCURON [Concomitant]
     Active Substance: VECURONIUM BROMIDE
     Indication: ENDOTRACHEAL INTUBATION
     Dates: start: 20120130, end: 20120130
  24. LIPITOR [Concomitant]
     Active Substance: ATORVASTATIN CALCIUM
     Dates: end: 20120130
  25. LISINOPRIL. [Concomitant]
     Active Substance: LISINOPRIL
     Dates: end: 20120130

REACTIONS (3)
  - Death [Fatal]
  - Cerebral haemorrhage [Fatal]
  - Subdural haemorrhage [Fatal]

NARRATIVE: CASE EVENT DATE: 20120130
